FAERS Safety Report 17536269 (Version 2)
Quarter: 2020Q1

REPORT INFORMATION
  Report Type: Spontaneous
  Country: DE (occurrence: DE)
  Receive Date: 20200313
  Receipt Date: 20200316
  Transmission Date: 20200409
  Serious: Yes (Life-Threatening, Other)
  Sender: FDA-Public Use
  Company Number: DE-PFIZER INC-2020104031

PATIENT

DRUGS (2)
  1. CYTOTEC [Suspect]
     Active Substance: MISOPROSTOL
     Indication: LABOUR INDUCTION
     Dosage: 1 DF, UNK (2 TIMES HALF A TABLET)
     Dates: start: 20160802, end: 20160802
  2. CYTOTEC [Suspect]
     Active Substance: MISOPROSTOL
     Dosage: 1 DF, UNK (SHORT BEFORE THE CARDIAC ARREST OF THE BABY A WHOLE TABLET)
     Dates: start: 20160803, end: 20160803

REACTIONS (3)
  - Foetal exposure during delivery [Unknown]
  - Cardiac arrest [Recovered/Resolved]
  - Foetal heart rate abnormal [Recovered/Resolved]

NARRATIVE: CASE EVENT DATE: 201608
